FAERS Safety Report 7524401-8 (Version None)
Quarter: 2011Q2

REPORT INFORMATION
  Report Type: 
  Country: None (occurrence: None)
  Receive Date: 20110601
  Receipt Date: 20110601
  Transmission Date: 20111010
  Serious: Yes (Hospitalization)
  Sender: FDA-Public Use
  Company Number: None

PATIENT
  Sex: Male
  Weight: 81.6475 kg

DRUGS (13)
  1. FUROSEMIDE [Concomitant]
  2. NOVOLIN 70/30 [Concomitant]
  3. POTASSIUM CHLORIDE [Concomitant]
  4. ROSUVASTATIN [Concomitant]
  5. PLAVIX [Suspect]
     Indication: CORONARY ARTERIAL STENT INSERTION
     Dosage: 75MG BID PO
     Route: 048
  6. ASPIRIN [Concomitant]
  7. RANITIDINE [Concomitant]
  8. PRADAXA [Suspect]
     Indication: ATRIAL FIBRILLATION
     Dosage: 150MG BID PO 2-3 WEEKS
     Route: 048
  9. MULTI-VITAMIN [Concomitant]
  10. CARVEDILOL [Concomitant]
  11. TEMAZEPAM [Concomitant]
  12. DRONEDARONE HCL [Concomitant]
  13. LOSARTAN POTASSIUM [Concomitant]

REACTIONS (6)
  - INTERNATIONAL NORMALISED RATIO INCREASED [None]
  - GASTROINTESTINAL HAEMORRHAGE [None]
  - PALLOR [None]
  - HAEMOPTYSIS [None]
  - HAEMOGLOBIN DECREASED [None]
  - MALAISE [None]
